FAERS Safety Report 19461871 (Version 1)
Quarter: 2021Q2

REPORT INFORMATION
  Report Type: Spontaneous
  Country: DE (occurrence: DE)
  Receive Date: 20210625
  Receipt Date: 20210625
  Transmission Date: 20210717
  Serious: Yes (Other)
  Sender: FDA-Public Use
  Company Number: DE-ELI_LILLY_AND_COMPANY-DE202106005614

PATIENT
  Age: 80 Year
  Sex: Female

DRUGS (1)
  1. VERZENIOS 150MG [Suspect]
     Active Substance: ABEMACICLIB
     Indication: BREAST CANCER METASTATIC
     Dosage: 150 MG, UNKNOWN
     Route: 048

REACTIONS (2)
  - Oesophageal carcinoma [Unknown]
  - Tracheal cancer [Unknown]
